FAERS Safety Report 7622791-9 (Version None)
Quarter: 2011Q3

REPORT INFORMATION
  Report Type: 
  Country: None (occurrence: None)
  Receive Date: 20110701
  Receipt Date: 20100719
  Transmission Date: 20111222
  Serious: Yes (Hospitalization)
  Sender: FDA-Public Use
  Company Number: 7011566

PATIENT
  Age: 35 Year
  Sex: Male
  Weight: 99 kg

DRUGS (3)
  1. LANTUS [Concomitant]
  2. REBIF [Suspect]
     Indication: MULTIPLE SCLEROSIS
     Dosage: 44 MCG, 3 IN 1 WK, SUBCUTANEOUS
     Route: 058
     Dates: start: 20090912
  3. NOVOLOG [Concomitant]

REACTIONS (4)
  - APPENDICITIS [None]
  - PAIN [None]
  - APPENDICITIS PERFORATED [None]
  - OPEN WOUND [None]
